FAERS Safety Report 19987259 (Version 2)
Quarter: 2021Q4

REPORT INFORMATION
  Report Type: Spontaneous
  Country: JP (occurrence: JP)
  Receive Date: 20211022
  Receipt Date: 20211117
  Transmission Date: 20220303
  Serious: No
  Sender: FDA-Public Use
  Company Number: JP-JNJFOC-20211039275

PATIENT

DRUGS (1)
  1. SIMPONI [Suspect]
     Active Substance: GOLIMUMAB
     Indication: Colitis ulcerative
     Dosage: STRENGTH: 50.00 MG / 0.50 ML
     Route: 058

REACTIONS (1)
  - Syringe issue [Unknown]

NARRATIVE: CASE EVENT DATE: 20210929
